FAERS Safety Report 16946638 (Version 1)
Quarter: 2019Q4

REPORT INFORMATION
  Report Type: Spontaneous
  Country: US (occurrence: US)
  Receive Date: 20190830
  Receipt Date: 20190830
  Transmission Date: 20200122
  Serious: No
  Sender: FDA-Public Use
  Company Number: None

PATIENT
  Age: 60 Year
  Sex: Female
  Weight: 65.77 kg

DRUGS (6)
  1. DUEXIS [Suspect]
     Active Substance: FAMOTIDINE\IBUPROFEN
  2. PENNSAID [Suspect]
     Active Substance: DICLOFENAC SODIUM
     Indication: ARTHRALGIA
     Dosage: ?          QUANTITY:300MG/26.6MG;?
     Route: 048
     Dates: start: 201904, end: 20190724
  3. PRESER VISION [Concomitant]
  4. TUMERIC [Concomitant]
     Active Substance: HERBALS\TURMERIC
  5. VITAMIN D [Concomitant]
     Active Substance: VITAMIN D NOS
  6. MAGNESIUM [Concomitant]
     Active Substance: MAGNESIUM

REACTIONS (8)
  - Vision blurred [None]
  - Visual acuity reduced [None]
  - Application site pruritus [None]
  - Macular oedema [None]
  - Application site vesicles [None]
  - Peripheral swelling [None]
  - Secretion discharge [None]
  - Application site swelling [None]

NARRATIVE: CASE EVENT DATE: 20190727
